FAERS Safety Report 8882429 (Version 2)
Quarter: 2012Q4

REPORT INFORMATION
  Report Type: Report from Study
  Country: CA (occurrence: CA)
  Receive Date: 20121105
  Receipt Date: 20121107
  Transmission Date: 20130627
  Serious: Yes (Life-Threatening)
  Sender: FDA-Public Use
  Company Number: CA-JNJFOC-20121014430

PATIENT
  Sex: Female
  Weight: 43 kg

DRUGS (14)
  1. REMICADE [Suspect]
     Indication: CROHN^S DISEASE
     Route: 042
     Dates: start: 20080131
  2. REMICADE [Suspect]
     Indication: CROHN^S DISEASE
     Route: 042
     Dates: start: 20080117
  3. CITALOPRAM [Concomitant]
     Route: 065
  4. PANTOPRAZOLE [Concomitant]
     Route: 065
  5. SOLUCORTEF [Concomitant]
     Indication: PREMEDICATION
     Route: 065
  6. VITAMIN B12 [Concomitant]
     Route: 065
  7. RISEDRONATE [Concomitant]
     Route: 065
  8. ZOPICLONE [Concomitant]
     Route: 065
  9. APO-CAL [Concomitant]
     Route: 065
  10. VIT D [Concomitant]
     Route: 065
  11. ASA [Concomitant]
     Route: 065
  12. ALL OTHER THERAPEUTICS [Concomitant]
     Indication: PREMEDICATION
     Route: 065
  13. BENADRYL [Concomitant]
     Indication: PREMEDICATION
     Route: 065
  14. CYANOCOBALAMIN [Concomitant]
     Route: 065

REACTIONS (1)
  - Neoplasm malignant [Not Recovered/Not Resolved]
